FAERS Safety Report 7795156-7 (Version None)
Quarter: 2011Q4

REPORT INFORMATION
  Report Type: 
  Country: None (occurrence: None)
  Receive Date: 20111004
  Receipt Date: 20110920
  Transmission Date: 20120403
  Serious: Yes (Other)
  Sender: FDA-Public Use
  Company Number: GB-NOVEN-11GB003262

PATIENT
  Age: 32 Year
  Sex: Female

DRUGS (1)
  1. PAROXETINE HCL [Suspect]
     Indication: INSOMNIA
     Dosage: UNK

REACTIONS (2)
  - OFF LABEL USE [None]
  - PSYCHIATRIC SYMPTOM [None]
